FAERS Safety Report 18716689 (Version 1)
Quarter: 2021Q1

REPORT INFORMATION
  Report Type: Spontaneous
  Country: JP (occurrence: JP)
  Receive Date: 20210108
  Receipt Date: 20210108
  Transmission Date: 20210419
  Serious: Yes (Other)
  Sender: FDA-Public Use
  Company Number: JP-SUN PHARMACEUTICAL INDUSTRIES LTD-2020R1-274659

PATIENT
  Age: 47 Year
  Sex: Female

DRUGS (3)
  1. ARIPIPRAZOLE. [Suspect]
     Active Substance: ARIPIPRAZOLE
     Indication: SCHIZOPHRENIA
     Dosage: 30 MILLIGRAM, DAILY
     Route: 065
  2. LITHIUM. [Suspect]
     Active Substance: LITHIUM
     Indication: SCHIZOPHRENIA
     Dosage: 800 MILLIGRAM, DAILY
     Route: 065
  3. HALOPERIDOL. [Suspect]
     Active Substance: HALOPERIDOL
     Indication: SCHIZOPHRENIA
     Dosage: 21 MILLIGRAM, DAILY
     Route: 065

REACTIONS (1)
  - Therapeutic response decreased [Unknown]
